FAERS Safety Report 12325663 (Version 1)
Quarter: 2016Q2

REPORT INFORMATION
  Report Type: Spontaneous
  Country: HU (occurrence: HU)
  Receive Date: 20160503
  Receipt Date: 20160503
  Transmission Date: 20160815
  Serious: Yes (Hospitalization, Other)
  Sender: FDA-Public Use
  Company Number: HU-ACTELION-A-CH2016-135185

PATIENT
  Age: 13 Year
  Sex: Male
  Weight: 35 kg

DRUGS (6)
  1. FUROSEMIDE. [Concomitant]
     Active Substance: FUROSEMIDE
  2. TRACLEER [Suspect]
     Active Substance: BOSENTAN
     Indication: PULMONARY ARTERIAL HYPERTENSION
     Dosage: 62.5 MG, BID
     Route: 048
     Dates: start: 20130505, end: 20160405
  3. REMODULIN [Suspect]
     Active Substance: TREPROSTINIL
     Indication: PULMONARY ARTERIAL HYPERTENSION
     Dosage: UNK
     Route: 042
     Dates: start: 20140224, end: 20160405
  4. REVATIO [Suspect]
     Active Substance: SILDENAFIL CITRATE
     Indication: PULMONARY ARTERIAL HYPERTENSION
     Dosage: 20 MG, TID
     Route: 048
     Dates: start: 20141013, end: 20160405
  5. NOACID [Concomitant]
     Active Substance: ALUMINUM HYDROXIDE
  6. CLEXANE [Concomitant]
     Active Substance: ENOXAPARIN SODIUM

REACTIONS (5)
  - Disease progression [Unknown]
  - Lung transplant [Unknown]
  - Shunt occlusion [Unknown]
  - Pulmonary arterial hypertension [Unknown]
  - Condition aggravated [Unknown]

NARRATIVE: CASE EVENT DATE: 201602
